FAERS Safety Report 18078538 (Version 1)
Quarter: 2020Q3

REPORT INFORMATION
  Report Type: Spontaneous
  Country: US (occurrence: US)
  Receive Date: 20200727
  Receipt Date: 20200727
  Transmission Date: 20201103
  Serious: Yes (Other)
  Sender: FDA-Public Use
  Company Number: None

PATIENT
  Age: 23 Year
  Sex: Male
  Weight: 114.7 kg

DRUGS (4)
  1. AZITHROMYCIN 250MG DAILY [Concomitant]
     Dates: start: 20200725
  2. CEFTRIAXONE 1GM Q 24H [Concomitant]
     Dates: start: 20200725
  3. REMDESIVIR. [Suspect]
     Active Substance: REMDESIVIR
     Indication: COVID-19
     Dosage: ?          OTHER FREQUENCY:ONCE;?
     Route: 040
     Dates: start: 20200725, end: 20200726
  4. FAMOTIDINE 20MG BID [Concomitant]
     Dates: start: 20200725

REACTIONS (1)
  - Liver function test increased [None]

NARRATIVE: CASE EVENT DATE: 20200725
